FAERS Safety Report 20923474 (Version 1)
Quarter: 2022Q2

REPORT INFORMATION
  Report Type: Report from Study
  Country: CA (occurrence: CA)
  Receive Date: 20220607
  Receipt Date: 20220607
  Transmission Date: 20220721
  Serious: Yes (Other)
  Sender: FDA-Public Use
  Company Number: CA-JNJFOC-20220602223

PATIENT
  Sex: Female

DRUGS (1)
  1. REMICADE [Suspect]
     Active Substance: INFLIXIMAB
     Indication: Crohn^s disease
     Route: 042

REACTIONS (4)
  - Squamous cell carcinoma [Unknown]
  - Incision site pain [Recovering/Resolving]
  - Incision site pruritus [Recovering/Resolving]
  - Incision site erythema [Recovering/Resolving]

NARRATIVE: CASE EVENT DATE: 20220101
